FAERS Safety Report 5815130-7 (Version None)
Quarter: 2008Q3

REPORT INFORMATION
  Report Type: 
  Country: None (occurrence: None)
  Receive Date: 20080718
  Receipt Date: 20080717
  Transmission Date: 20090109
  Serious: Yes (Hospitalization)
  Sender: FDA-Public Use
  Company Number: JP-BRISTOL-MYERS SQUIBB COMPANY-14266670

PATIENT
  Age: 83 Year
  Sex: Female

DRUGS (7)
  1. GATIFLOXACIN [Suspect]
     Indication: CELLULITIS
     Dates: start: 20080126, end: 20080129
  2. MELBIN [Suspect]
     Route: 048
     Dates: end: 20080129
  3. CONTRAST AGENT [Suspect]
     Route: 065
     Dates: start: 20080129, end: 20080129
  4. LIVALO [Concomitant]
     Route: 048
  5. MUCOSTA [Concomitant]
     Route: 048
  6. GLUCOBAY [Concomitant]
     Route: 048
  7. AMARYL [Concomitant]
     Route: 048

REACTIONS (1)
  - HYPOGLYCAEMIA [None]
